FAERS Safety Report 19746816 (Version 1)
Quarter: 2021Q3

REPORT INFORMATION
  Report Type: Spontaneous
  Country: US (occurrence: US)
  Receive Date: 20210825
  Receipt Date: 20210825
  Transmission Date: 20211014
  Serious: No
  Sender: FDA-Public Use
  Company Number: US-GALDERMA-US2021014468

PATIENT

DRUGS (5)
  1. PROACTIV MD DAILY OIL CONTROL SPF 30 [Suspect]
     Active Substance: AVOBENZONE\OCTISALATE\OCTOCRYLENE
     Indication: ACNE
     Dosage: 1 DOSAGE FORM, BID, 2 OR MORE TIMES A DAY, CUTANEOUS SOLUTION
     Route: 061
     Dates: start: 20210131, end: 20210228
  2. PROACTIV MD DEEP CLEANSING FACE WASH [Concomitant]
     Active Substance: COSMETICS
     Indication: ACNE
     Dosage: 1 DOSAGE FORM, BID, 2 OR MORE TIMES A DAY
     Route: 061
     Dates: start: 20210131, end: 20210228
  3. PROACTIV REDNESS RELIEF SERUM [Concomitant]
     Indication: ACNE
     Dosage: 1 DOSAGE FORM, BID, 2 OR MORE TIMES A DAY
     Route: 061
     Dates: start: 20210131, end: 20210228
  4. PROACTIV MD ADAPALENE ACNE TREATMENT [Suspect]
     Active Substance: ADAPALENE
     Indication: ACNE
     Dosage: 1 DOSAGE FORM, BID, 2 OR MORE TIMES A DAY
     Route: 061
     Dates: start: 20210131, end: 20210228
  5. PROACTIV DEEP CLEANSING WASH [Concomitant]
     Active Substance: SALICYLIC ACID
     Indication: ACNE
     Dosage: 1 DOSAGE FORM, BID, 2 OR MORE TIMES A DAY
     Route: 061
     Dates: start: 20210131, end: 20210228

REACTIONS (7)
  - Sensitive skin [Recovered/Resolved]
  - Erythema [Recovered/Resolved]
  - Pain of skin [Recovered/Resolved]
  - Acne [Recovered/Resolved]
  - Chemical burn of skin [Recovered/Resolved]
  - Inappropriate schedule of product administration [Recovered/Resolved]
  - Overdose [Recovered/Resolved]

NARRATIVE: CASE EVENT DATE: 20210131
